FAERS Safety Report 7479223-3 (Version None)
Quarter: 2011Q2

REPORT INFORMATION
  Report Type: 
  Country: None (occurrence: None)
  Receive Date: 20110513
  Receipt Date: 20110511
  Transmission Date: 20111010
  Serious: Yes (Hospitalization)
  Sender: FDA-Public Use
  Company Number: A0927138A

PATIENT
  Age: 16 Year
  Sex: Female

DRUGS (1)
  1. LAMICTAL [Suspect]
     Route: 048
     Dates: start: 20090202

REACTIONS (3)
  - TOXIC EPIDERMAL NECROLYSIS [None]
  - BLINDNESS [None]
  - STEVENS-JOHNSON SYNDROME [None]
